FAERS Safety Report 5972037-2 (Version None)
Quarter: 2008Q4

REPORT INFORMATION
  Report Type: 
  Country: None (occurrence: None)
  Receive Date: 20081125
  Receipt Date: 20081112
  Transmission Date: 20090506
  Serious: Yes (Other)
  Sender: FDA-Public Use
  Company Number: 08-001802

PATIENT
  Sex: Female

DRUGS (1)
  1. FEMCON FE [Suspect]
     Indication: OVARIAN CYST
     Dosage: 0.4MG/35MCG, QD, ORAL
     Route: 048
     Dates: start: 20081001

REACTIONS (9)
  - ABDOMINAL PAIN UPPER [None]
  - ASTHENIA [None]
  - CHEST DISCOMFORT [None]
  - DIZZINESS [None]
  - DYSPNOEA [None]
  - HEADACHE [None]
  - INSOMNIA [None]
  - MOOD ALTERED [None]
  - SYNCOPE [None]
